FAERS Safety Report 25048471 (Version 1)
Quarter: 2025Q1

REPORT INFORMATION
  Report Type: Spontaneous
  Country: US (occurrence: US)
  Receive Date: 20250307
  Receipt Date: 20250307
  Transmission Date: 20250409
  Serious: No
  Sender: GLENMARK
  Company Number: US-GLENMARK PHARMACEUTICALS-2024GMK096251

PATIENT

DRUGS (1)
  1. LEVOCETIRIZINE DIHYDROCHLORIDE [Suspect]
     Active Substance: LEVOCETIRIZINE DIHYDROCHLORIDE
     Indication: Vasomotor rhinitis
     Dosage: 1 DOSAGE FORM, QD (ONE TABLET A DAY WHICH SHE TOOK EVERY NIGHT)
     Route: 048

REACTIONS (6)
  - Cough [Unknown]
  - Rhinorrhoea [Unknown]
  - Drug effective for unapproved indication [Unknown]
  - Product dose omission issue [Unknown]
  - Product packaging quantity issue [Unknown]
  - Therapy interrupted [Unknown]
